FAERS Safety Report 5344940-8 (Version None)
Quarter: 2007Q2

REPORT INFORMATION
  Report Type: 
  Country: None (occurrence: None)
  Receive Date: 20070416
  Receipt Date: 20070124
  Transmission Date: 20071010
  Serious: No
  Sender: FDA-Public Use
  Company Number: 2006SP004338

PATIENT
  Age: 82 Year
  Sex: Male
  Weight: 83.9154 kg

DRUGS (6)
  1. LUNESTA [Suspect]
     Indication: INSOMNIA
     Dosage: SEE IMAGE
     Route: 048
     Dates: start: 20061101, end: 20061101
  2. LUNESTA [Suspect]
     Indication: INSOMNIA
     Dosage: SEE IMAGE
     Route: 048
     Dates: start: 20061201, end: 20061201
  3. CLONAZEPAM [Concomitant]
  4. TAMSULOSIN HCL [Concomitant]
  5. CYMBALTA [Concomitant]
  6. AMBIEN [Concomitant]

REACTIONS (3)
  - MALAISE [None]
  - NIGHTMARE [None]
  - TACHYCARDIA [None]
